FAERS Safety Report 9379565 (Version 3)
Quarter: 2013Q3

REPORT INFORMATION
  Report Type: Report from Study
  Country: CA (occurrence: CA)
  Receive Date: 20130702
  Receipt Date: 20130910
  Transmission Date: 20140515
  Serious: Yes (Hospitalization, Other)
  Sender: FDA-Public Use
  Company Number: CA-JNJFOC-20130617664

PATIENT
  Age: 47 Year
  Sex: Female
  Weight: 53 kg

DRUGS (5)
  1. REMICADE [Suspect]
     Indication: CROHN^S DISEASE
     Dosage: THERAPY DURATION-3 HOURS
     Route: 042
     Dates: start: 20130319
  2. REMICADE [Suspect]
     Indication: RHEUMATOID ARTHRITIS
     Dosage: THERAPY DURATION-3 HOURS
     Route: 042
     Dates: start: 20130319
  3. IMURAN [Concomitant]
     Route: 065
  4. PREDNISONE [Concomitant]
     Route: 065
  5. ESTRACE [Concomitant]
     Route: 065

REACTIONS (4)
  - Large intestinal stenosis [Unknown]
  - Intestinal obstruction [Unknown]
  - Abscess intestinal [Unknown]
  - Vein disorder [Unknown]
